FAERS Safety Report 8440131-2 (Version None)
Quarter: 2012Q2

REPORT INFORMATION
  Report Type: 
  Country: None (occurrence: None)
  Receive Date: 20120615
  Receipt Date: 20120606
  Transmission Date: 20120825
  Serious: Yes (Hospitalization)
  Sender: FDA-Public Use
  Company Number: US-ACTELION-A-US2012-67009

PATIENT

DRUGS (7)
  1. TRACLEER [Suspect]
     Indication: PULMONARY ARTERIAL HYPERTENSION
     Dosage: UNK
     Route: 048
     Dates: start: 20051031
  2. ADCIRCA [Concomitant]
  3. TICLID [Concomitant]
  4. CALCIUM CHANNEL BLOCKERS [Concomitant]
  5. PLAVIX [Concomitant]
  6. AMIODARONE HCL [Concomitant]
  7. OXYGEN [Concomitant]

REACTIONS (3)
  - SYNCOPE [None]
  - LIGAMENT SPRAIN [None]
  - CONTUSION [None]
